FAERS Safety Report 8530817-3 (Version None)
Quarter: 2012Q3

REPORT INFORMATION
  Report Type: 
  Country: None (occurrence: None)
  Receive Date: 20120723
  Receipt Date: 20120718
  Transmission Date: 20120928
  Serious: No
  Sender: FDA-Public Use
  Company Number: US-PFIZER INC-2012174076

PATIENT
  Sex: Female
  Weight: 54.422 kg

DRUGS (2)
  1. LIPITOR [Concomitant]
     Dosage: UNK
  2. ADVIL [Suspect]
     Indication: ARTHRITIS
     Dosage: UNK
     Route: 048
     Dates: end: 20120701

REACTIONS (1)
  - EPISTAXIS [None]
